FAERS Safety Report 6301715-0 (Version None)
Quarter: 2009Q3

REPORT INFORMATION
  Report Type: 
  Country: None (occurrence: None)
  Receive Date: 20090807
  Receipt Date: 20090729
  Transmission Date: 20100115
  Serious: Yes (Other)
  Sender: FDA-Public Use
  Company Number: CA-ELI_LILLY_AND_COMPANY-CA200906000862

PATIENT
  Age: 59 Year
  Sex: Female

DRUGS (4)
  1. CYMBALTA [Suspect]
     Indication: DEPRESSION
     Dosage: 60 MG, DAILY (1/D)
     Dates: start: 20080901
  2. CYMBALTA [Suspect]
     Dosage: 60 MG, EACH MORNING
  3. WELLBUTRIN [Concomitant]
     Dosage: 300 MG, UNK
     Dates: start: 20080901
  4. WELLBUTRIN [Concomitant]
     Dosage: 150 MG, UNK
     Dates: start: 20081101

REACTIONS (8)
  - BINGE EATING [None]
  - FACE OEDEMA [None]
  - FLUID RETENTION [None]
  - FOOD CRAVING [None]
  - HYPERHIDROSIS [None]
  - OEDEMA [None]
  - RENAL IMPAIRMENT [None]
  - WEIGHT INCREASED [None]
